FAERS Safety Report 11153381 (Version 2)
Quarter: 2015Q2

REPORT INFORMATION
  Report Type: Report from Study
  Country: BR (occurrence: BR)
  Receive Date: 20150602
  Receipt Date: 20150630
  Transmission Date: 20150821
  Serious: Yes (Other)
  Sender: FDA-Public Use
  Company Number: PHHY2015BR062611

PATIENT
  Sex: Female
  Weight: 53 kg

DRUGS (3)
  1. ACLASTA [Suspect]
     Active Substance: ZOLEDRONIC ACID
     Indication: OSTEOPOROSIS
     Dosage: 5 MG, 1 APPLICATION/YEAR
     Route: 042
  2. ACLASTA [Suspect]
     Active Substance: ZOLEDRONIC ACID
     Indication: SPINAL COMPRESSION FRACTURE
  3. CAL D /00944201/ [Suspect]
     Active Substance: CALCIUM CARBONATE\CHOLECALCIFEROL
     Indication: SPINAL COMPRESSION FRACTURE
     Route: 065

REACTIONS (5)
  - Drug effect delayed [Unknown]
  - Fall [Unknown]
  - Hypersensitivity [Unknown]
  - Upper limb fracture [Recovered/Resolved]
  - Gastrointestinal pain [Unknown]
